FAERS Safety Report 7969682-1 (Version None)
Quarter: 2011Q4

REPORT INFORMATION
  Report Type: 
  Country: None (occurrence: None)
  Receive Date: 20111122
  Receipt Date: 20110823
  Transmission Date: 20120403
  Serious: No
  Sender: FDA-Public Use
  Company Number: PHEH2011US02471

PATIENT
  Age: 46 Year
  Sex: Female

DRUGS (3)
  1. RITALIN [Concomitant]
  2. GILENYA [Suspect]
     Dosage: 0.5 MG, DAILY, ORAL
     Route: 048
     Dates: start: 20110811
  3. HYDROCHLOROTHIAZIDE [Concomitant]

REACTIONS (2)
  - OEDEMA PERIPHERAL [None]
  - SWELLING FACE [None]
